FAERS Safety Report 12913198 (Version 3)
Quarter: 2016Q4

REPORT INFORMATION
  Report Type: Spontaneous
  Country: ES (occurrence: ES)
  Receive Date: 20161104
  Receipt Date: 20161117
  Transmission Date: 20170207
  Serious: Yes (Life-Threatening, Hospitalization, Disabling, Other)
  Sender: FDA-Public Use
  Company Number: ES-CELGENEUS-ESP-2016107931

PATIENT
  Age: 78 Year
  Sex: Male

DRUGS (1)
  1. AZACITIDINE. [Suspect]
     Active Substance: AZACITIDINE
     Indication: ACUTE MYELOID LEUKAEMIA
     Dosage: 75MG/M2
     Route: 058
     Dates: start: 20160613, end: 20160620

REACTIONS (4)
  - Febrile neutropenia [Recovered/Resolved]
  - Platelet count decreased [Recovered/Resolved]
  - Neutropenia [Unknown]
  - Malignant neoplasm of unknown primary site [Not Recovered/Not Resolved]

NARRATIVE: CASE EVENT DATE: 20160728
